FAERS Safety Report 5391554-X (Version None)
Quarter: 2007Q3

REPORT INFORMATION
  Report Type: 
  Country: None (occurrence: None)
  Receive Date: 20070719
  Receipt Date: 20070710
  Transmission Date: 20080115
  Serious: Yes (Life-Threatening)
  Sender: FDA-Public Use
  Company Number: CO-PFIZER INC-2006127880

PATIENT
  Age: 66 Year
  Sex: Male

DRUGS (5)
  1. SULPERAZON [Suspect]
  2. ZYVOX [Suspect]
  3. CIPROFLOXACIN [Concomitant]
  4. CLINDAMYCIN HCL [Concomitant]
  5. OXACILLIN [Concomitant]

REACTIONS (1)
  - METABOLIC ACIDOSIS [None]
